FAERS Safety Report 14185714 (Version 1)
Quarter: 2017Q4

REPORT INFORMATION
  Report Type: Spontaneous
  Country: US (occurrence: US)
  Receive Date: 20171114
  Receipt Date: 20171114
  Transmission Date: 20180321
  Serious: Yes (Other)
  Sender: FDA-Public Use
  Company Number: US-LEXICON PHARMACEUTICALS, INC-17-1606-01143

PATIENT
  Sex: Male

DRUGS (19)
  1. METAMUCIL [Concomitant]
     Active Substance: PLANTAGO SEED
  2. BELLADONNA-OPIUM [Concomitant]
  3. MEGACE ORAL SUS [Concomitant]
  4. OMEGA3 [Concomitant]
  5. MULTIVITAMIN [Concomitant]
     Active Substance: VITAMINS
  6. TELOTRISTAT ETHYL [Suspect]
     Active Substance: TELOTRISTAT ETHYL
     Indication: CARCINOID TUMOUR
     Route: 048
     Dates: start: 20170514
  7. CREON [Concomitant]
     Active Substance: PANCRELIPASE AMYLASE\PANCRELIPASE LIPASE\PANCRELIPASE PROTEASE
  8. EVERLOMIUS [Concomitant]
     Dates: start: 20171022
  9. ROXICODONE [Concomitant]
     Active Substance: OXYCODONE HYDROCHLORIDE
  10. LOPERAMIDE [Concomitant]
     Active Substance: LOPERAMIDE
  11. K-PHOS [Concomitant]
     Active Substance: POTASSIUM PHOSPHATE, MONOBASIC
  12. SIMETHICONE (DIMETHICONE) [Concomitant]
     Active Substance: DIMETHICONE
  13. ZOFRAN [Concomitant]
     Active Substance: ONDANSETRON HYDROCHLORIDE
  14. DIPHENOXYLATE-ATROPINE [Concomitant]
  15. QUESTRAN [Concomitant]
     Active Substance: CHOLESTYRAMINE
  16. FIBER [Concomitant]
     Active Substance: PSYLLIUM HUSK
  17. TYLENOL [Concomitant]
     Active Substance: ACETAMINOPHEN
  18. MELATONIN [Concomitant]
     Active Substance: MELATONIN
  19. SANDOSTATIN [Concomitant]
     Active Substance: OCTREOTIDE ACETATE
     Dates: start: 20170203

REACTIONS (5)
  - Asthma [Unknown]
  - Iron deficiency anaemia [Unknown]
  - Deep vein thrombosis [Unknown]
  - Dehydration [Unknown]
  - Abdominal pain [Unknown]

NARRATIVE: CASE EVENT DATE: 2017
